FAERS Safety Report 11865165 (Version 3)
Quarter: 2019Q2

REPORT INFORMATION
  Report Type: Report from Study
  Country: US (occurrence: US)
  Receive Date: 20151223
  Receipt Date: 20190508
  Transmission Date: 20190711
  Serious: Yes (Other)
  Sender: FDA-Public Use
  Company Number: US-BIOMARINAP-US-2015-108459

PATIENT
  Age: 28 Year
  Sex: Female

DRUGS (2)
  1. ALDURAZYME [Suspect]
     Active Substance: LARONIDASE
     Indication: MUCOPOLYSACCHARIDOSIS I
     Dosage: 65.54 MG, QOW
     Route: 041
     Dates: start: 20050217
  2. ALDURAZYME [Suspect]
     Active Substance: LARONIDASE
     Dosage: 78.3 MILLIGRAM, QOW
     Route: 041
     Dates: start: 20120723, end: 20190422

REACTIONS (8)
  - Malaise [Unknown]
  - Paranoia [Unknown]
  - Anxiety [Unknown]
  - Bipolar disorder [Unknown]
  - Delusion [Unknown]
  - Abnormal behaviour [Unknown]
  - Depression [Unknown]
  - Cognitive disorder [Unknown]
